FAERS Safety Report 5850501-4 (Version None)
Quarter: 2008Q3

REPORT INFORMATION
  Report Type: 
  Country: None (occurrence: None)
  Receive Date: 20080819
  Receipt Date: 20080808
  Transmission Date: 20090109
  Serious: Yes (Hospitalization)
  Sender: FDA-Public Use
  Company Number: JP-PFIZER INC-2008068096

PATIENT
  Age: 84 Year
  Sex: Male

DRUGS (11)
  1. ALDACTONE [Suspect]
     Route: 048
  2. HOKUNALIN [Concomitant]
  3. WARFARIN SODIUM [Concomitant]
     Route: 048
  4. ASPIRIN [Concomitant]
     Route: 048
  5. LANIRAPID [Concomitant]
     Route: 048
  6. PLAVIX [Concomitant]
     Route: 048
  7. SIGMART [Concomitant]
     Route: 048
  8. LOPRESSOR [Concomitant]
     Route: 048
  9. DORNER [Concomitant]
     Route: 048
  10. MUCODYNE [Concomitant]
     Route: 048
  11. MAGNESIUM OXIDE [Concomitant]
     Route: 048

REACTIONS (3)
  - BLOOD POTASSIUM INCREASED [None]
  - GYNAECOMASTIA [None]
  - UNEVALUABLE EVENT [None]
